FAERS Safety Report 16783442 (Version 1)
Quarter: 2019Q3

REPORT INFORMATION
  Report Type: Spontaneous
  Country: GB (occurrence: GB)
  Receive Date: 20190907
  Receipt Date: 20190907
  Transmission Date: 20191005
  Serious: Yes (Other)
  Sender: FDA-Public Use
  Company Number: GB-TEVA-2019-GB-1103354

PATIENT
  Age: 4 Year
  Sex: Female
  Weight: 17 kg

DRUGS (3)
  1. GAVISCON [Concomitant]
     Active Substance: ALUMINUM HYDROXIDE\MAGNESIUM CARBONATE
     Dosage: HALF TO ONE SACHET IN BOTTLE OF MILK.
     Dates: start: 20150216, end: 20190617
  2. CHLORPHENAMINE [Concomitant]
     Active Substance: CHLORPHENIRAMINE MALEATE
     Dosage: TAKE 2.5MG 4-6 HOURLY. MAX DOSE 6MG IN 24 HOURS.
     Dates: start: 20190809
  3. CO-AMOXICLAV [Suspect]
     Active Substance: AMOXICILLIN\CLAVULANATE POTASSIUM
     Dosage: 250MG/62MG/5ML.
     Dates: start: 20190729, end: 20190805

REACTIONS (2)
  - Urticaria [Recovering/Resolving]
  - Rash macular [Recovering/Resolving]
